FAERS Safety Report 25444798 (Version 1)
Quarter: 2025Q2

REPORT INFORMATION
  Report Type: Report from Study
  Country: TR (occurrence: TR)
  Receive Date: 20250617
  Receipt Date: 20250617
  Transmission Date: 20250717
  Serious: Yes (Other)
  Sender: CHEPLAPHARM
  Company Number: TR-CHEPLA-2025007370

PATIENT
  Age: 57 Year
  Sex: Female

DRUGS (2)
  1. OLANZAPINE [Suspect]
     Active Substance: OLANZAPINE
     Indication: Psychotic disorder
  2. HALOPERIDOL [Suspect]
     Active Substance: HALOPERIDOL
     Indication: Psychotic disorder

REACTIONS (5)
  - Pneumonia [Unknown]
  - Pericarditis [Unknown]
  - Systemic lupus erythematosus [Recovering/Resolving]
  - Thrombophlebitis [Unknown]
  - Pleural effusion [Unknown]
